FAERS Safety Report 21690311 (Version 1)
Quarter: 2022Q4

REPORT INFORMATION
  Report Type: Spontaneous
  Country: US (occurrence: None)
  Receive Date: 20221206
  Receipt Date: 20221206
  Transmission Date: 20230113
  Serious: Yes (Hospitalization)
  Sender: FDA-Public Use
  Company Number: None

PATIENT
  Age: 56 Year
  Sex: Male
  Weight: 37 kg

DRUGS (2)
  1. FLUOROURACIL [Suspect]
     Active Substance: FLUOROURACIL
     Dates: end: 20221115
  2. CISPLATIN [Suspect]
     Active Substance: CISPLATIN

REACTIONS (24)
  - Chills [None]
  - Cough [None]
  - Neck pain [None]
  - Palpitations [None]
  - Pyrexia [None]
  - Chest pain [None]
  - Nausea [None]
  - Vomiting [None]
  - Diarrhoea [None]
  - Constipation [None]
  - Melaena [None]
  - Dysuria [None]
  - Haematuria [None]
  - Oropharyngeal pain [None]
  - Headache [None]
  - Dizziness [None]
  - Visual impairment [None]
  - Hypoaesthesia [None]
  - Paraesthesia [None]
  - Asthenia [None]
  - Fall [None]
  - Pneumonia [None]
  - Neutropenia [None]
  - Sepsis [None]

NARRATIVE: CASE EVENT DATE: 20221126
